FAERS Safety Report 11281088 (Version 15)
Quarter: 2016Q2

REPORT INFORMATION
  Report Type: Spontaneous
  Country: CN (occurrence: CN)
  Receive Date: 20150717
  Receipt Date: 20160617
  Transmission Date: 20160815
  Serious: Yes (Hospitalization, Other)
  Sender: FDA-Public Use
  Company Number: CN-009507513-1507CHN003400

PATIENT
  Age: 41 Year
  Sex: Male
  Weight: 58.5 kg

DRUGS (16)
  1. EMEND [Suspect]
     Active Substance: APREPITANT
     Dosage: 80 MG, DAY 3
     Route: 048
     Dates: start: 20150626, end: 20150626
  2. GLYCERIN. [Concomitant]
     Active Substance: GLYCERIN
     Indication: PURGING
     Dosage: TOTAL DAILY DOSE: 40 ML/CC, FREQUENCY: PRN
     Route: 054
     Dates: start: 20150623, end: 20150623
  3. EMEND [Suspect]
     Active Substance: APREPITANT
     Indication: PROPHYLAXIS OF NAUSEA AND VOMITING
     Dosage: 125 MG, DAY 1
     Route: 048
     Dates: start: 20150624, end: 20150624
  4. DEXAMETHASONE. [Concomitant]
     Active Substance: DEXAMETHASONE
     Indication: PROPHYLAXIS OF NAUSEA AND VOMITING
     Dosage: 5 MG, QD
     Route: 042
     Dates: start: 20150624, end: 20150626
  5. CISPLATIN. [Suspect]
     Active Substance: CISPLATIN
     Indication: LUNG ADENOCARCINOMA STAGE II
     Dosage: 30 MG, DAILY (DAY1-DAY4, TREATMENT CYCLE 1/UNK)
     Route: 041
     Dates: start: 20150624, end: 20150627
  6. MINERALS (UNSPECIFIED) (+) VITAMINS (UNSPECIFIED) [Concomitant]
     Indication: VITAMIN SUPPLEMENTATION
     Dosage: 1 TABLET, QD
     Route: 048
     Dates: start: 20150621
  7. ESPUMISAN [Concomitant]
     Active Substance: DIMETHICONE
     Indication: ABDOMINAL DISTENSION
     Dosage: TOTAL DAILY DOSE: 6.0 ML/CC, ; FREQUENCY: TID
     Route: 048
     Dates: start: 20150621, end: 20150621
  8. CYANOCOBALAMIN. [Concomitant]
     Active Substance: CYANOCOBALAMIN
     Indication: PROPHYLAXIS
     Dosage: 1 MG, QD
     Route: 030
     Dates: start: 20150621, end: 20150621
  9. TROPISETRON [Concomitant]
     Active Substance: TROPISETRON
     Indication: PROPHYLAXIS OF NAUSEA AND VOMITING
     Dosage: TOTAL DAILY DOSE: 10 MG, FREQUENCY: BID
     Route: 042
     Dates: start: 20150624, end: 20150626
  10. DEXAMETHASONE. [Concomitant]
     Active Substance: DEXAMETHASONE
     Indication: ANTIALLERGIC THERAPY
     Dosage: 3.75 MG, QD
     Route: 048
     Dates: start: 20150623, end: 20150623
  11. CODEINE PHOSPHATE (+) PLATYCODON [Concomitant]
     Indication: COUGH
     Dosage: TOTAL DAILY DOSE: 72 MG;
     Route: 048
     Dates: start: 20150619
  12. PHOSPHATIDYL CHOLINE [Concomitant]
     Active Substance: LECITHIN
     Indication: PROPHYLAXIS
     Dosage: TOTAL DAILY DOSE:20 ML/CC,
     Route: 041
     Dates: start: 20150624, end: 20150702
  13. EMEND [Suspect]
     Active Substance: APREPITANT
     Dosage: 80 MG, DAY 2
     Route: 048
     Dates: start: 20150625, end: 20150625
  14. PEMETREXED DISODIUM [Suspect]
     Active Substance: PEMETREXED DISODIUM
     Indication: LUNG ADENOCARCINOMA STAGE II
     Dosage: 1 G, ONCE (D1, TREATMENT CYCLE 1/UNK)
     Route: 041
     Dates: start: 20150624, end: 20150624
  15. MAGNESIUM ISOGLYCYRRHIZINATE [Concomitant]
     Active Substance: MAGNESIUM ISOGLYCYRRHIZINATE
     Indication: PROPHYLAXIS
     Dosage: 40.0 ML/CC, QD
     Route: 041
     Dates: start: 20150624, end: 20150624
  16. DIPHENHYDRAMINE. [Concomitant]
     Active Substance: DIPHENHYDRAMINE
     Indication: PROPHYLAXIS OF NAUSEA AND VOMITING
     Dosage: TOTAL DAILY DOSE: 40 MG
     Route: 030
     Dates: start: 20150624, end: 20150626

REACTIONS (3)
  - Constipation [Recovered/Resolved]
  - Aspartate aminotransferase increased [Recovered/Resolved]
  - Metastases to central nervous system [Not Recovered/Not Resolved]

NARRATIVE: CASE EVENT DATE: 20150624
